FAERS Safety Report 10570652 (Version 1)
Quarter: 2014Q4

REPORT INFORMATION
  Report Type: Spontaneous
  Country: US (occurrence: None)
  Receive Date: 20141106
  Receipt Date: 20141106
  Transmission Date: 20150529
  Serious: Yes (Other)
  Sender: FDA-Public Use
  Company Number: None

PATIENT
  Age: 72 Year
  Sex: Female
  Weight: 102.97 kg

DRUGS (2)
  1. LUBRICATING RELIEF [Suspect]
     Active Substance: POLYETHYLENE GLYCOL 400\PROPYLENE GLYCOL
     Indication: CATARACT OPERATION
     Dosage: ONE DROP PER EYE FOUR TIMES DAILY INTO THE EYE
     Dates: start: 20141015, end: 20141103
  2. LUBRICATING RELIEF [Suspect]
     Active Substance: POLYETHYLENE GLYCOL 400\PROPYLENE GLYCOL
     Indication: DRY EYE
     Dosage: ONE DROP PER EYE FOUR TIMES DAILY INTO THE EYE
     Dates: start: 20141015, end: 20141103

REACTIONS (2)
  - Vision blurred [None]
  - Product substitution issue [None]

NARRATIVE: CASE EVENT DATE: 20141104
